FAERS Safety Report 5145246-2 (Version None)
Quarter: 2006Q4

REPORT INFORMATION
  Report Type: 
  Country: None (occurrence: None)
  Receive Date: 20061107
  Receipt Date: 20040308
  Transmission Date: 20070319
  Serious: Yes (Other)
  Sender: FDA-Public Use
  Company Number: US-ELI_LILLY_AND_COMPANY-USA040361311

PATIENT
  Age: 64 Year
  Sex: Female
  Weight: 59.091 kg

DRUGS (5)
  1. EVISTA [Suspect]
     Indication: OSTEOPOROSIS
     Dosage: 60 MG, DAILY (1/D)
     Route: 048
     Dates: start: 20040123
  2. FORTEO [Suspect]
     Indication: OSTEOPOROSIS
     Dosage: 20 UG, DAILY (1/D)
     Route: 065
     Dates: start: 20040502, end: 20040807
  3. NORPACE [Concomitant]
     Indication: MITRAL VALVE PROLAPSE
     Dosage: 100 MG, DAILY (1/D)
  4. ATENOLOL [Concomitant]
     Indication: MITRAL VALVE PROLAPSE
     Dosage: 50 MG, DAILY (1/D)
     Dates: start: 19770101
  5. CALCIUM [Concomitant]
     Dosage: 1200 MG, DAILY (1/D)

REACTIONS (4)
  - ASTHENIA [None]
  - BONE PAIN [None]
  - PALPITATIONS [None]
  - THORACIC VERTEBRAL FRACTURE [None]
